FAERS Safety Report 8785177 (Version 1)
Quarter: 2012Q4

REPORT INFORMATION
  Report Type: 
  Country: AU (occurrence: AU)
  Receive Date: 20120914
  Receipt Date: 20120914
  Transmission Date: 20130627
  Serious: Yes (Other)
  Sender: FDA-Public Use
  Company Number: AU-ASTRAZENECA-2012SE70792

PATIENT
  Age: 40 Year
  Sex: Male

DRUGS (1)
  1. LOSEC [Suspect]
     Route: 048

REACTIONS (1)
  - Multiple fractures [Unknown]
